FAERS Safety Report 12337415 (Version 1)
Quarter: 2016Q2

REPORT INFORMATION
  Report Type: Spontaneous
  Country: US (occurrence: US)
  Receive Date: 20160505
  Receipt Date: 20160505
  Transmission Date: 20160815
  Serious: Yes (Death, Congenital Anomaly, Other)
  Sender: FDA-Public Use
  Company Number: US-BIOGEN-2016BI00231671

PATIENT

DRUGS (1)
  1. TYSABRI [Suspect]
     Active Substance: NATALIZUMAB
     Indication: MATERNAL EXPOSURE TIMING UNSPECIFIED
     Route: 064
     Dates: start: 20141125, end: 20160108

REACTIONS (3)
  - Foetal exposure timing unspecified [Recovered/Resolved]
  - Foetal heart rate abnormal [Fatal]
  - Trisomy 18 [Fatal]
